FAERS Safety Report 14250828 (Version 2)
Quarter: 2018Q1

REPORT INFORMATION
  Report Type: Spontaneous
  Country: US (occurrence: US)
  Receive Date: 20171205
  Receipt Date: 20180306
  Transmission Date: 20180508
  Serious: Yes (Hospitalization, Other)
  Sender: FDA-Public Use
  Company Number: US-PFIZER INC-2017518526

PATIENT
  Age: 56 Year
  Sex: Female
  Weight: 104 kg

DRUGS (4)
  1. LISINOPRIL. [Concomitant]
     Active Substance: LISINOPRIL
     Indication: HYPERTENSION
     Dosage: 10 MG, DAILY
     Route: 048
  2. LYRICA [Suspect]
     Active Substance: PREGABALIN
     Dosage: UNK
  3. INSULIN GLARGINE [Concomitant]
     Active Substance: INSULIN GLARGINE
     Dosage: 36 IU, 1X/DAY (AT BEDTIME)
     Route: 058
  4. INSULIN LISPRO [Concomitant]
     Active Substance: INSULIN LISPRO
     Dosage: 10 IU, DAILY
     Route: 058

REACTIONS (5)
  - Stevens-Johnson syndrome [Unknown]
  - Fatigue [Unknown]
  - Blood pressure increased [Unknown]
  - Onycholysis [Unknown]
  - Dysgeusia [Unknown]
